FAERS Safety Report 5693769-X (Version None)
Quarter: 2008Q2

REPORT INFORMATION
  Report Type: 
  Country: None (occurrence: None)
  Receive Date: 20080403
  Receipt Date: 20080328
  Transmission Date: 20081010
  Serious: Yes (Hospitalization)
  Sender: FDA-Public Use
  Company Number: FR-JNJFOC-20080400087

PATIENT
  Sex: Male

DRUGS (14)
  1. RISPERDAL [Suspect]
     Route: 048
  2. RISPERDAL [Suspect]
     Route: 048
  3. RISPERDAL [Suspect]
     Route: 048
  4. RISPERDAL [Suspect]
     Route: 048
  5. RISPERDAL [Suspect]
     Indication: BIPOLAR I DISORDER
     Route: 048
  6. RIVOTRIL [Suspect]
     Indication: BIPOLAR I DISORDER
     Route: 048
  7. VALIUM [Suspect]
     Route: 048
  8. VALIUM [Suspect]
     Indication: BIPOLAR I DISORDER
     Route: 048
  9. EFFEXOR [Suspect]
     Route: 048
  10. EFFEXOR [Suspect]
     Indication: BIPOLAR I DISORDER
     Route: 048
  11. SURMONTIL [Suspect]
     Indication: BIPOLAR I DISORDER
     Route: 048
  12. TERCIAN [Suspect]
     Indication: BIPOLAR I DISORDER
     Route: 048
  13. TAREG [Concomitant]
     Indication: HYPERTENSION
  14. DIAMICRON [Concomitant]
     Indication: TYPE 2 DIABETES MELLITUS

REACTIONS (4)
  - ACCIDENTAL OVERDOSE [None]
  - CONVULSION [None]
  - FATIGUE [None]
  - WITHDRAWAL SYNDROME [None]
